FAERS Safety Report 7240206-X (Version None)
Quarter: 2011Q1

REPORT INFORMATION
  Report Type: 
  Country: None (occurrence: None)
  Receive Date: 20110113
  Receipt Date: 20101229
  Transmission Date: 20110831
  Serious: Yes (Hospitalization)
  Sender: FDA-Public Use
  Company Number: 2010US000103

PATIENT
  Age: 66 Year
  Sex: Female

DRUGS (7)
  1. ALEVE [Concomitant]
  2. PREMPRO [Concomitant]
  3. LISINOPRIL [Concomitant]
  4. ENTEREG [Suspect]
     Indication: POSTOPERATIVE ILEUS
     Dosage: 12 MG; ; PO
     Route: 048
     Dates: start: 20090403, end: 20090406
  5. DYAZIDE [Concomitant]
  6. ENABLEX [Concomitant]
  7. STOOL SOFTENER [Concomitant]

REACTIONS (1)
  - HAEMOLYTIC ANAEMIA [None]
